FAERS Safety Report 20748799 (Version 2)
Quarter: 2022Q2

REPORT INFORMATION
  Report Type: Spontaneous
  Country: CA (occurrence: CA)
  Receive Date: 20220426
  Receipt Date: 20220527
  Transmission Date: 20220721
  Serious: Yes (Hospitalization)
  Sender: FDA-Public Use
  Company Number: CA-CELLTRION INC.-2022CA005090

PATIENT

DRUGS (16)
  1. INFLECTRA [Suspect]
     Active Substance: INFLIXIMAB-DYYB
     Indication: Rheumatoid arthritis
     Dosage: 400 MG, 0, 2, 6, THEN EVERY 8 WEEKS
     Route: 042
     Dates: start: 20180911, end: 20190319
  2. INFLECTRA [Suspect]
     Active Substance: INFLIXIMAB-DYYB
     Dosage: 400 MG , EVERY 6 WEEKS
     Route: 042
     Dates: start: 20190502, end: 20191220
  3. INFLECTRA [Suspect]
     Active Substance: INFLIXIMAB-DYYB
     Dosage: 500 MG , EVERY 6 WEEKS
     Route: 042
     Dates: start: 20200131
  4. INFLECTRA [Suspect]
     Active Substance: INFLIXIMAB-DYYB
     Dosage: 500 MG , EVERY 6 WEEKS
     Route: 042
     Dates: start: 20220303
  5. INFLECTRA [Suspect]
     Active Substance: INFLIXIMAB-DYYB
     Dosage: 500 MG , EVERY 6 WEEKS
     Route: 042
     Dates: start: 20220413
  6. AZATHIOPRINE [Concomitant]
     Active Substance: AZATHIOPRINE
     Dosage: 150 MG, 1X/DAY
     Route: 048
  7. CANDESARTAN [Concomitant]
     Active Substance: CANDESARTAN
     Indication: Hypertension
     Dosage: 4 MG, 1X/DAY
     Dates: start: 20180326
  8. NOVORAPID [Concomitant]
     Active Substance: INSULIN ASPART
     Dosage: 1 DF,SLIDING SCALE ON CARBOHYDRATE COUNTING WITH 2:1 RATIO - TID
  9. LEVEMIR [Concomitant]
     Active Substance: INSULIN DETEMIR
     Dosage: 1 DF, 16 UNITS IN AM AND 180 UNITS AT BEDTIME
  10. LOSEC [Concomitant]
     Active Substance: OMEPRAZOLE
     Dosage: 20 MG, 1X/DAY
     Route: 048
  11. MESALAMINE [Concomitant]
     Active Substance: MESALAMINE
     Dosage: 1 DF, 1X/DAY, 3.6
     Route: 048
  12. METOCLOPRAMIDE [Concomitant]
     Active Substance: METOCLOPRAMIDE
     Dosage: 1 DF,5MG IN AM /10MG AT LUNCH AND DINNER OD
     Route: 048
  13. FISH OIL [Concomitant]
     Active Substance: FISH OIL
     Dosage: 1 DF, 1X/DAY, UNKNOWN DOSE
  14. ALBUTEROL [Concomitant]
     Active Substance: ALBUTEROL
     Dosage: 1 DF,UNKNOWN DOSE, FREQUENCY,PUFFER AS NEEDED
  15. MAGNESIUM [Concomitant]
     Active Substance: MAGNESIUM
     Dosage: 1 DF,UNKNOWN DOSE, FREQUENCY
  16. CHOLECALCIFEROL [Concomitant]
     Active Substance: CHOLECALCIFEROL
     Dosage: 1 DF,UNKNOWN DOSE, FREQUENCY

REACTIONS (9)
  - Kidney infection [Recovered/Resolved]
  - Off label use [Unknown]
  - COVID-19 [Recovering/Resolving]
  - Cough [Recovered/Resolved]
  - Dyspnoea [Not Recovered/Not Resolved]
  - Burning sensation [Recovered/Resolved]
  - Blood glucose increased [Recovered/Resolved]
  - Hypertension [Recovered/Resolved]
  - Heart rate increased [Unknown]

NARRATIVE: CASE EVENT DATE: 20220301
